FAERS Safety Report 10310027 (Version 3)
Quarter: 2014Q3

REPORT INFORMATION
  Report Type: Spontaneous
  Country: JP (occurrence: JP)
  Receive Date: 20140717
  Receipt Date: 20140804
  Transmission Date: 20150326
  Serious: Yes (Death, Other)
  Sender: FDA-Public Use
  Company Number: PHHY2014JP087299

PATIENT

DRUGS (2)
  1. ONBREZ [Suspect]
     Active Substance: INDACATEROL
     Indication: CHRONIC OBSTRUCTIVE PULMONARY DISEASE
     Dosage: UNK
     Route: 055
  2. MORPHINE [Suspect]
     Active Substance: MORPHINE
     Dosage: UNK UKN, UNK

REACTIONS (2)
  - Depressed level of consciousness [Unknown]
  - Death [Fatal]
